FAERS Safety Report 23379300 (Version 1)
Quarter: 2024Q1

REPORT INFORMATION
  Report Type: Spontaneous
  Country: IT (occurrence: IT)
  Receive Date: 20240108
  Receipt Date: 20240108
  Transmission Date: 20240410
  Serious: Yes (Death)
  Sender: FDA-Public Use
  Company Number: IT-TEVA-VS-3140090

PATIENT
  Age: 30 Year

DRUGS (3)
  1. ZOLPIDEM [Suspect]
     Active Substance: ZOLPIDEM TARTRATE
     Indication: Product used for unknown indication
     Route: 048
  2. CHLOROFORM [Suspect]
     Active Substance: CHLOROFORM
     Indication: Drug diversion
     Dosage: THE MAN PRACTICED FORCED EXTERNAL SUFFOCATION BY OCCLUSION OF HER NOSE AND MOUTH?USING A SOFT BLA...
     Route: 045
  3. CHLOROFORM [Suspect]
     Active Substance: CHLOROFORM
     Indication: Drug diversion
     Dosage: THE MAN PRACTICED FORCED EXTERNAL SUFFOCATION BY OCCLUSION OF HER NOSE AND MOUTH?USING A SOFT BLA...
     Route: 048

REACTIONS (4)
  - Altered state of consciousness [Fatal]
  - Toxicity to various agents [Fatal]
  - Maternal exposure during pregnancy [Unknown]
  - Drug diversion [Unknown]
